FAERS Safety Report 12470395 (Version 1)
Quarter: 2016Q2

REPORT INFORMATION
  Report Type: Spontaneous
  Country: CN (occurrence: CN)
  Receive Date: 20160616
  Receipt Date: 20160616
  Transmission Date: 20160815
  Serious: Yes (Hospitalization)
  Sender: FDA-Public Use
  Company Number: CN-ROCHE-1776451

PATIENT
  Age: 80 Year
  Sex: Male
  Weight: 56 kg

DRUGS (2)
  1. XELODA [Suspect]
     Active Substance: CAPECITABINE
     Dosage: 2500MG/DAY, 2 WEEKS FOLLOWED BY 1-WEEK REST
     Route: 048
     Dates: start: 20160607
  2. XELODA [Suspect]
     Active Substance: CAPECITABINE
     Indication: RECTAL CANCER
     Dosage: 2500 MG/DAY, 2 WEEKS FOLLOWED BY 1-WEEK REST
     Route: 048
     Dates: start: 201604, end: 20160603

REACTIONS (2)
  - Large intestine polyp [Recovered/Resolved]
  - Pruritus [Not Recovered/Not Resolved]
